FAERS Safety Report 14429103 (Version 1)
Quarter: 2018Q1

REPORT INFORMATION
  Report Type: Spontaneous
  Country: US (occurrence: US)
  Receive Date: 20180123
  Receipt Date: 20180123
  Transmission Date: 20180509
  Serious: No
  Sender: FDA-Public Use
  Company Number: US-BAUSCH-BL-2017-031481

PATIENT
  Sex: Female

DRUGS (1)
  1. TOBRAMYCIN OPHTHALMIC SOLUTION USP 0.3% [Suspect]
     Active Substance: TOBRAMYCIN
     Indication: BLEPHARITIS
     Route: 047
     Dates: start: 20171026, end: 20171105

REACTIONS (7)
  - Ocular toxicity [Recovering/Resolving]
  - Hypersensitivity [Recovering/Resolving]
  - Conjunctival hyperaemia [Recovering/Resolving]
  - Eye pain [Recovering/Resolving]
  - Pruritus [Recovering/Resolving]
  - Swelling [Recovering/Resolving]
  - Eye discharge [Recovering/Resolving]

NARRATIVE: CASE EVENT DATE: 2017
